FAERS Safety Report 6024934-X (Version None)
Quarter: 2008Q4

REPORT INFORMATION
  Report Type: 
  Country: None (occurrence: None)
  Receive Date: 20081231
  Receipt Date: 20081219
  Transmission Date: 20090506
  Serious: Yes (Other)
  Sender: FDA-Public Use
  Company Number: FI-PFIZER INC-2008157226

PATIENT

DRUGS (3)
  1. LYRICA [Suspect]
     Indication: NERVE ROOT LESION
     Dates: start: 20080722, end: 20081103
  2. TREXAN (METHOTREXATE) [Concomitant]
     Indication: RHEUMATOID ARTHRITIS
     Dates: end: 20080101
  3. SALAZOPYRIN [Concomitant]
     Indication: RHEUMATOID ARTHRITIS
     Dosage: UNK
     Route: 048

REACTIONS (3)
  - PAPILLITIS [None]
  - SCOTOMA [None]
  - VISUAL ACUITY REDUCED [None]
